FAERS Safety Report 11323095 (Version 8)
Quarter: 2017Q1

REPORT INFORMATION
  Report Type: Report from Study
  Country: HU (occurrence: HU)
  Receive Date: 20150730
  Receipt Date: 20170313
  Transmission Date: 20170428
  Serious: Yes (Death, Hospitalization)
  Sender: FDA-Public Use
  Company Number: HU-ROCHE-1613605

PATIENT
  Age: 65 Year
  Sex: Male
  Weight: 86 kg

DRUGS (48)
  1. RITUXIMAB [Suspect]
     Active Substance: RITUXIMAB
     Indication: B-CELL LYMPHOMA
     Dosage: ONCE
     Route: 042
     Dates: start: 20140109, end: 20140109
  2. RITUXIMAB [Suspect]
     Active Substance: RITUXIMAB
     Dosage: MAINTENANCE PERIOD?DATE OF MOST RECENT DOSE PRIOR TO SAE ON 25/JUN/2015
     Route: 058
     Dates: start: 201407, end: 20150719
  3. PREDNISOLONE. [Concomitant]
     Active Substance: PREDNISOLONE
     Route: 065
     Dates: start: 20150108, end: 20150108
  4. PREDNISOLONE. [Concomitant]
     Active Substance: PREDNISOLONE
     Route: 065
     Dates: start: 20140326, end: 20140326
  5. PREDNISOLONE. [Concomitant]
     Active Substance: PREDNISOLONE
     Route: 065
     Dates: start: 20150430, end: 20150430
  6. PREDNISOLONE. [Concomitant]
     Active Substance: PREDNISOLONE
     Dosage: 7 CYCLES RECEIVED
     Route: 042
     Dates: start: 20120612, end: 20121108
  7. PANADOL (HUNGARY) [Concomitant]
     Route: 065
     Dates: start: 20140206, end: 20140206
  8. PANADOL (HUNGARY) [Concomitant]
     Route: 065
     Dates: start: 20140918, end: 20140918
  9. PANADOL (HUNGARY) [Concomitant]
     Route: 065
     Dates: start: 20150108, end: 20150108
  10. PREDNISOLONE. [Concomitant]
     Active Substance: PREDNISOLONE
     Route: 065
     Dates: start: 20140306, end: 20140306
  11. PREDNISOLONE. [Concomitant]
     Active Substance: PREDNISOLONE
     Route: 065
     Dates: start: 20140403, end: 20140403
  12. PANADOL (HUNGARY) [Concomitant]
     Route: 065
     Dates: start: 20140306, end: 20140306
  13. PANADOL (HUNGARY) [Concomitant]
     Route: 065
     Dates: start: 20150305, end: 20150305
  14. PANADOL (HUNGARY) [Concomitant]
     Route: 065
     Dates: start: 20150430, end: 20150430
  15. PANADOL (HUNGARY) [Concomitant]
     Route: 065
     Dates: start: 20150625, end: 20150625
  16. SUPRASTIN [Concomitant]
     Active Substance: CHLOROPYRAMINE HYDROCHLORIDE
     Indication: PREMEDICATION
     Route: 065
     Dates: start: 20140109, end: 20140109
  17. PANADOL (HUNGARY) [Concomitant]
     Route: 065
     Dates: start: 20140505, end: 20140505
  18. PANADOL (HUNGARY) [Concomitant]
     Route: 065
     Dates: start: 20140724, end: 20140724
  19. SUPRASTIN [Concomitant]
     Active Substance: CHLOROPYRAMINE HYDROCHLORIDE
     Route: 065
     Dates: start: 20140206, end: 20140206
  20. SUPRASTIN [Concomitant]
     Active Substance: CHLOROPYRAMINE HYDROCHLORIDE
     Route: 065
     Dates: start: 20140505, end: 20140505
  21. SUPRASTIN [Concomitant]
     Active Substance: CHLOROPYRAMINE HYDROCHLORIDE
     Route: 065
     Dates: start: 20150305, end: 20150305
  22. SUPRASTIN [Concomitant]
     Active Substance: CHLOROPYRAMINE HYDROCHLORIDE
     Route: 065
     Dates: start: 20150430, end: 20150430
  23. SUPRASTIN [Concomitant]
     Active Substance: CHLOROPYRAMINE HYDROCHLORIDE
     Route: 065
     Dates: start: 20150625, end: 20150625
  24. PANADOL (HUNGARY) [Concomitant]
     Route: 065
     Dates: start: 20150529, end: 20150529
  25. PANADOL (HUNGARY) [Concomitant]
     Route: 065
     Dates: start: 20140326, end: 20140326
  26. SUPRASTIN [Concomitant]
     Active Substance: CHLOROPYRAMINE HYDROCHLORIDE
     Route: 065
     Dates: start: 20140326, end: 20140326
  27. BENDAMUSTINE [Suspect]
     Active Substance: BENDAMUSTINE
     Indication: B-CELL LYMPHOMA
     Dosage: 6 CYCLES RECEIVED
     Route: 042
     Dates: start: 201312, end: 201405
  28. PREDNISOLONE. [Concomitant]
     Active Substance: PREDNISOLONE
     Route: 065
     Dates: start: 20140206, end: 20140206
  29. PREDNISOLONE. [Concomitant]
     Active Substance: PREDNISOLONE
     Route: 065
     Dates: start: 20140724, end: 20140724
  30. SUPRASTIN [Concomitant]
     Active Substance: CHLOROPYRAMINE HYDROCHLORIDE
     Route: 065
     Dates: start: 20140724, end: 20140724
  31. PREDNISOLONE. [Concomitant]
     Active Substance: PREDNISOLONE
     Indication: PREMEDICATION
     Route: 065
     Dates: start: 20140109, end: 20140109
  32. PREDNISOLONE. [Concomitant]
     Active Substance: PREDNISOLONE
     Route: 065
     Dates: start: 20150625, end: 20150625
  33. SUPRASTIN [Concomitant]
     Active Substance: CHLOROPYRAMINE HYDROCHLORIDE
     Route: 065
     Dates: start: 20140403, end: 20140403
  34. SUPRASTIN [Concomitant]
     Active Substance: CHLOROPYRAMINE HYDROCHLORIDE
     Route: 065
     Dates: start: 20141117, end: 20141117
  35. RITUXIMAB [Suspect]
     Active Substance: RITUXIMAB
     Indication: B-CELL LYMPHOMA
     Dosage: FOR 6 CYCLES (INDUCTION PERIOD)
     Route: 058
     Dates: start: 20140206, end: 201407
  36. PREDNISOLONE. [Concomitant]
     Active Substance: PREDNISOLONE
     Route: 065
     Dates: start: 20150305, end: 20150305
  37. PANADOL (HUNGARY) [Concomitant]
     Indication: PREMEDICATION
     Route: 065
     Dates: start: 20140109, end: 20140109
  38. SUPRASTIN [Concomitant]
     Active Substance: CHLOROPYRAMINE HYDROCHLORIDE
     Route: 065
     Dates: start: 20140529, end: 20140529
  39. SUPRASTIN [Concomitant]
     Active Substance: CHLOROPYRAMINE HYDROCHLORIDE
     Route: 065
     Dates: start: 20150108, end: 20150108
  40. PREDNISOLONE. [Concomitant]
     Active Substance: PREDNISOLONE
     Route: 065
     Dates: start: 20140505, end: 20140505
  41. PREDNISOLONE. [Concomitant]
     Active Substance: PREDNISOLONE
     Route: 065
     Dates: start: 20150529, end: 20150529
  42. PREDNISOLONE. [Concomitant]
     Active Substance: PREDNISOLONE
     Route: 065
     Dates: start: 20140918, end: 20140918
  43. PREDNISOLONE. [Concomitant]
     Active Substance: PREDNISOLONE
     Route: 065
     Dates: start: 20141117, end: 20141117
  44. PANADOL (HUNGARY) [Concomitant]
     Route: 065
     Dates: start: 20140403, end: 20140403
  45. PANADOL (HUNGARY) [Concomitant]
     Route: 065
     Dates: start: 20141117, end: 20141117
  46. PANADOL (HUNGARY) [Concomitant]
     Route: 065
     Dates: start: 20150430, end: 20150430
  47. SUPRASTIN [Concomitant]
     Active Substance: CHLOROPYRAMINE HYDROCHLORIDE
     Route: 065
     Dates: start: 20140306, end: 20140306
  48. SUPRASTIN [Concomitant]
     Active Substance: CHLOROPYRAMINE HYDROCHLORIDE
     Route: 065
     Dates: start: 20140918, end: 20140918

REACTIONS (1)
  - Progressive multifocal leukoencephalopathy [Fatal]

NARRATIVE: CASE EVENT DATE: 20150715
